FAERS Safety Report 13555219 (Version 1)
Quarter: 2017Q2

REPORT INFORMATION
  Report Type: Spontaneous
  Country: NL (occurrence: NL)
  Receive Date: 20170517
  Receipt Date: 20170517
  Transmission Date: 20170830
  Serious: Yes (Disabling)
  Sender: FDA-Public Use
  Company Number: NL-PFIZER INC-2017211516

PATIENT
  Age: 69 Year
  Sex: Male
  Weight: 78 kg

DRUGS (2)
  1. ALISKIREN/HYDROCHLOROTHIAZIDE [Concomitant]
     Dosage: 1 DF, UNK
     Route: 048
  2. SUTENT [Suspect]
     Active Substance: SUNITINIB MALATE
     Indication: METASTATIC RENAL CELL CARCINOMA
     Dosage: 50 MG, 1X/DAY FOR 2 WEEKS, THAN 1 WEEK REST AND THAN THE NEXT CYCLUS OF 3 WEEKS
     Route: 048
     Dates: start: 20160927, end: 20170413

REACTIONS (2)
  - Monoparesis [Not Recovered/Not Resolved]
  - Spinal cord ischaemia [Not Recovered/Not Resolved]

NARRATIVE: CASE EVENT DATE: 20170413
